FAERS Safety Report 13527073 (Version 1)
Quarter: 2017Q2

REPORT INFORMATION
  Report Type: Spontaneous
  Country: US (occurrence: US)
  Receive Date: 20170509
  Receipt Date: 20170509
  Transmission Date: 20170830
  Serious: No
  Sender: FDA-Public Use
  Company Number: US-BIOGEN-2017BI00397082

PATIENT
  Sex: Male

DRUGS (1)
  1. AVONEX [Suspect]
     Active Substance: INTERFERON BETA-1A
     Indication: MULTIPLE SCLEROSIS
     Route: 065
     Dates: start: 20100927, end: 20141201

REACTIONS (5)
  - Balance disorder [Unknown]
  - Food poisoning [Unknown]
  - Vertigo [Unknown]
  - Dysarthria [Unknown]
  - Nuclear magnetic resonance imaging abnormal [Not Recovered/Not Resolved]
